FAERS Safety Report 4434380-8 (Version None)
Quarter: 2004Q3

REPORT INFORMATION
  Report Type: 
  Country: None (occurrence: None)
  Receive Date: 20040825
  Receipt Date: 20040813
  Transmission Date: 20050211
  Serious: Yes (Death, Hospitalization)
  Sender: FDA-Public Use
  Company Number: USA-2004-0015671

PATIENT
  Age: 72 Year
  Sex: Male
  Weight: 64.9 kg

DRUGS (1)
  1. OXYCONTIN [Suspect]
     Indication: CANCER PAIN
     Dosage: MG

REACTIONS (12)
  - ACCIDENT [None]
  - ACCIDENTAL OVERDOSE [None]
  - ATHEROSCLEROSIS [None]
  - BEDRIDDEN [None]
  - CHOLELITHIASIS [None]
  - COMA [None]
  - DYSPNOEA [None]
  - PAIN [None]
  - PULMONARY OEDEMA [None]
  - RENAL FAILURE ACUTE [None]
  - SMALL CELL LUNG CANCER METASTATIC [None]
  - THERAPY NON-RESPONDER [None]
